FAERS Safety Report 9383758 (Version 1)
Quarter: 2013Q3

REPORT INFORMATION
  Report Type: Spontaneous
  Country: US (occurrence: US)
  Receive Date: 20130704
  Receipt Date: 20130704
  Transmission Date: 20140515
  Serious: No
  Sender: FDA-Public Use
  Company Number: US-PFIZER INC-2013196117

PATIENT
  Age: 61 Year
  Sex: Female
  Weight: 66.2 kg

DRUGS (7)
  1. PROTONIX [Suspect]
     Indication: GASTROOESOPHAGEAL REFLUX DISEASE
     Dosage: 40 MG, 1X/DAY
     Route: 048
  2. METOPROLOL [Concomitant]
     Dosage: 25 MG, UNK
  3. ASPIRIN [Concomitant]
     Dosage: 81 MG, UNK
  4. CALCIUM [Concomitant]
     Dosage: UNK
  5. FISH OIL [Concomitant]
     Dosage: UNK
  6. BENAZEPRIL [Concomitant]
     Dosage: 5 MG, UNK
  7. PRAVASTATIN [Concomitant]
     Dosage: 40 MG, UNK

REACTIONS (3)
  - Inappropriate schedule of drug administration [Unknown]
  - Gastritis [Unknown]
  - Arthralgia [Unknown]
